FAERS Safety Report 7918555-9 (Version None)
Quarter: 2011Q4

REPORT INFORMATION
  Report Type: 
  Country: None (occurrence: None)
  Receive Date: 20111116
  Receipt Date: 20110808
  Transmission Date: 20120403
  Serious: No
  Sender: FDA-Public Use
  Company Number: US-BAYER-2011-072708

PATIENT
  Sex: Female

DRUGS (2)
  1. GLUCOSAMINE [Concomitant]
     Indication: BACK PAIN
  2. ALEVE (CAPLET) [Suspect]
     Dosage: 1 DF, QD
     Route: 048

REACTIONS (1)
  - NO ADVERSE EVENT [None]
